FAERS Safety Report 5075289-9 (Version None)
Quarter: 2006Q3

REPORT INFORMATION
  Report Type: 
  Country: None (occurrence: None)
  Receive Date: 20060809
  Receipt Date: 20060201
  Transmission Date: 20061208
  Serious: No
  Sender: FDA-Public Use
  Company Number: US-AMGEN-US167131

PATIENT
  Sex: Male

DRUGS (5)
  1. EPOGEN [Suspect]
     Indication: RENAL FAILURE CHRONIC
     Dates: start: 20040101
  2. LIPITOR [Concomitant]
  3. HYDRALAZINE HYDROCHLORIDE [Concomitant]
  4. VITAMINS [Concomitant]
  5. ECOTRIN [Concomitant]

REACTIONS (1)
  - THERAPEUTIC RESPONSE DECREASED [None]
